FAERS Safety Report 10694077 (Version 1)
Quarter: 2015Q1

REPORT INFORMATION
  Report Type: Spontaneous
  Country: US (occurrence: US)
  Receive Date: 20150106
  Receipt Date: 20150106
  Transmission Date: 20150721
  Serious: Yes (Other)
  Sender: FDA-Public Use
  Company Number: US-BRISTOL-MYERS SQUIBB COMPANY-BMS-2014-006677

PATIENT
  Age: 64 Year
  Sex: Male
  Weight: 81 kg

DRUGS (5)
  1. LAMOTRIGINE. [Concomitant]
     Active Substance: LAMOTRIGINE
  2. CITALOPRAM [Concomitant]
     Active Substance: CITALOPRAM HYDROBROMIDE
  3. ABILIFY [Suspect]
     Active Substance: ARIPIPRAZOLE
     Indication: DEPRESSION
     Dosage: 5 MG, QD
     Route: 048
     Dates: end: 201410
  4. ABILIFY [Suspect]
     Active Substance: ARIPIPRAZOLE
  5. VITAMINS                           /00067501/ [Concomitant]
     Active Substance: VITAMINS

REACTIONS (2)
  - Drug withdrawal syndrome [Unknown]
  - Weight increased [Unknown]

NARRATIVE: CASE EVENT DATE: 201410
